FAERS Safety Report 8403470-7 (Version None)
Quarter: 2012Q2

REPORT INFORMATION
  Report Type: 
  Country: None (occurrence: None)
  Receive Date: 20120601
  Receipt Date: 20060623
  Transmission Date: 20120825
  Serious: Yes (Other)
  Sender: FDA-Public Use
  Company Number: JP-BRISTOL-MYERS SQUIBB COMPANY-13481106

PATIENT
  Age: 47 Year
  Sex: Male

DRUGS (1)
  1. ABILIFY [Suspect]
     Dosage: 6MG QD 9JUN TO 18JUN06, 6MG BID,19JUN TO 22JUN06
     Route: 048
     Dates: start: 20060609

REACTIONS (3)
  - HALLUCINATION [None]
  - DELUSION [None]
  - HYPOMANIA [None]
